FAERS Safety Report 7003519-2 (Version None)
Quarter: 2010Q3

REPORT INFORMATION
  Report Type: 
  Country: None (occurrence: None)
  Receive Date: 20100916
  Receipt Date: 20100831
  Transmission Date: 20110219
  Serious: Yes (Hospitalization)
  Sender: FDA-Public Use
  Company Number: FKO201000378

PATIENT
  Age: 63 Year
  Sex: Female

DRUGS (3)
  1. EPIRUBICIN [Suspect]
     Indication: BREAST CANCER STAGE III
     Dosage: (145 MG/M2, ON DAY 1, REPEATED EVERY THREE WEEKS)
  2. FLUOROURACIL [Suspect]
     Indication: BREAST CANCER STAGE III
     Dosage: (720 MG/M2, ON DAY 1, REPEATED EVERY THREE WEEKS)
  3. CYCLOPHOSPHAMIDE [Suspect]
     Indication: BREAST CANCER STAGE III
     Dosage: (720 MG/M2, ON DAY 1, REPEATED EVERY THREE WEEKS)

REACTIONS (4)
  - NAIL DISORDER [None]
  - PALMAR-PLANTAR ERYTHRODYSAESTHESIA SYNDROME [None]
  - RASH MACULO-PAPULAR [None]
  - SKIN HYPERPIGMENTATION [None]
